FAERS Safety Report 24160580 (Version 4)
Quarter: 2025Q2

REPORT INFORMATION
  Report Type: Spontaneous
  Country: JP (occurrence: JP)
  Receive Date: 20240801
  Receipt Date: 20250418
  Transmission Date: 20250716
  Serious: Yes (Hospitalization)
  Sender: AMGEN
  Company Number: JP-Vifor (International) Inc.-VIT-2024-06034

PATIENT
  Age: 83 Year
  Sex: Female
  Weight: 44.7 kg

DRUGS (13)
  1. TAVNEOS [Suspect]
     Active Substance: AVACOPAN
     Indication: Microscopic polyangiitis
     Route: 048
     Dates: start: 20230414, end: 20230417
  2. TAVNEOS [Suspect]
     Active Substance: AVACOPAN
     Route: 048
     Dates: start: 20230425, end: 20230605
  3. PREDONINE [Concomitant]
     Active Substance: PREDNISOLONE
     Indication: Microscopic polyangiitis
     Dosage: 7.5 MILLIGRAM, QD
  4. PREDONINE [Concomitant]
     Active Substance: PREDNISOLONE
     Dosage: 50 MILLIGRAM, QD (TABLET )
     Route: 048
  5. PREDONINE [Concomitant]
     Active Substance: PREDNISOLONE
     Dosage: 20 MILLIGRAM, QD
     Route: 048
  6. PREDONINE [Concomitant]
     Active Substance: PREDNISOLONE
     Dosage: 7.5 MILLIGRAM, QD
     Route: 048
  7. PREDONINE [Concomitant]
     Active Substance: PREDNISOLONE
     Dosage: 5 MILLIGRAM, QD
     Route: 048
  8. PREDONINE [Concomitant]
     Active Substance: PREDNISOLONE
     Dosage: 3 MILLIGRAM, QD
     Route: 048
  9. PREDONINE [Concomitant]
     Active Substance: PREDNISOLONE
     Dosage: 2 MILLIGRAM, QD
     Route: 048
  10. RITUXIMAB [Concomitant]
     Active Substance: RITUXIMAB
     Indication: Microscopic polyangiitis
     Dosage: 500 MILLIGRAM, QWK
     Route: 040
     Dates: start: 20230411, end: 20230424
  11. RITUXIMAB [Concomitant]
     Active Substance: RITUXIMAB
     Dosage: 500 MILLIGRAM, QWK
     Route: 040
  12. RITUXIMAB [Concomitant]
     Active Substance: RITUXIMAB
     Dosage: 500 MILLIGRAM, QWK
     Route: 040
  13. ATOVAQUONE [Concomitant]
     Active Substance: ATOVAQUONE
     Indication: Antifungal prophylaxis
     Dosage: 750 MILLIGRAM, QD (LIQUID MEDICINE FOR INTERNAL USE)
     Route: 048
     Dates: start: 20230428, end: 20230605

REACTIONS (1)
  - Suspected drug-induced liver injury [Recovering/Resolving]

NARRATIVE: CASE EVENT DATE: 20230722
